FAERS Safety Report 4285723-X (Version None)
Quarter: 2004Q1

REPORT INFORMATION
  Report Type: 
  Country: None (occurrence: None)
  Receive Date: 20040203
  Receipt Date: 20040203
  Transmission Date: 20041129
  Serious: Yes (Other)
  Sender: FDA-Public Use
  Company Number: None

PATIENT
  Sex: Male
  Weight: 93.441 kg

DRUGS (9)
  1. CRESTOR [Suspect]
     Indication: HYPERCHOLESTEROLAEMIA
     Dosage: 10 MG QD
     Dates: start: 20031226, end: 20040127
  2. FAMOTIDINE [Concomitant]
  3. PROSCAR [Concomitant]
  4. SYNTHROID [Concomitant]
  5. LASIX [Concomitant]
  6. AMARYL [Concomitant]
  7. AMIODARONE HCL [Concomitant]
  8. COUMADIN [Concomitant]
  9. PROCARDIA [Concomitant]

REACTIONS (2)
  - ASPARTATE AMINOTRANSFERASE INCREASED [None]
  - BLOOD ALKALINE PHOSPHATASE INCREASED [None]
